FAERS Safety Report 5326388-5 (Version None)
Quarter: 2007Q2

REPORT INFORMATION
  Report Type: 
  Country: None (occurrence: None)
  Receive Date: 20070516
  Receipt Date: 20070510
  Transmission Date: 20071010
  Serious: Yes (Other)
  Sender: FDA-Public Use
  Company Number: D0053115A

PATIENT
  Age: 63 Year
  Sex: Female

DRUGS (2)
  1. AVANDAMET [Suspect]
     Dosage: 1002MG PER DAY
     Route: 048
     Dates: start: 20061001
  2. COAPROVEL [Concomitant]
     Indication: HYPERTENSION
     Route: 048

REACTIONS (1)
  - PUSTULAR PSORIASIS [None]
